FAERS Safety Report 16067671 (Version 1)
Quarter: 2019Q1

REPORT INFORMATION
  Report Type: Spontaneous
  Country: RU (occurrence: RU)
  Receive Date: 20190313
  Receipt Date: 20190313
  Transmission Date: 20190418
  Serious: Yes (Life-Threatening, Other)
  Sender: FDA-Public Use
  Company Number: IND-RU-009507513-1903RUS003615

PATIENT
  Age: 70 Year
  Sex: Male
  Weight: 79 kg

DRUGS (2)
  1. DIPRIVAN [Suspect]
     Active Substance: PROPOFOL
     Indication: INDUCTION OF ANAESTHESIA
     Dosage: 350/40 MG, DAILY DOSE
     Route: 042
     Dates: start: 20181213, end: 20181213
  2. ESMERON [Suspect]
     Active Substance: ROCURONIUM BROMIDE
     Indication: INDUCTION OF ANAESTHESIA
     Dosage: 350/40 MG, DAILY DOSE
     Route: 042
     Dates: start: 20181213, end: 20181213

REACTIONS (2)
  - Oxygen saturation decreased [Recovered/Resolved]
  - Anaphylactic shock [Recovered/Resolved]

NARRATIVE: CASE EVENT DATE: 20181213
